FAERS Safety Report 17900804 (Version 1)
Quarter: 2020Q2

REPORT INFORMATION
  Report Type: Spontaneous
  Country: US (occurrence: US)
  Receive Date: 20200616
  Receipt Date: 20200616
  Transmission Date: 20200714
  Serious: No
  Sender: FDA-Public Use
  Company Number: US-SA-2020SA148550

PATIENT

DRUGS (1)
  1. DUPIXENT [Suspect]
     Active Substance: DUPILUMAB
     Indication: ASTHMA
     Dosage: UNK UNK, QOW (1 SYRINGE UNDER THE SKIN)
     Route: 058
     Dates: start: 20200501

REACTIONS (3)
  - Rash [Unknown]
  - Weight increased [Unknown]
  - Scab [Unknown]

NARRATIVE: CASE EVENT DATE: 2020
